FAERS Safety Report 18480266 (Version 1)
Quarter: 2020Q4

REPORT INFORMATION
  Report Type: Spontaneous
  Country: CA (occurrence: CA)
  Receive Date: 20201109
  Receipt Date: 20201109
  Transmission Date: 20210114
  Serious: Yes (Other)
  Sender: FDA-Public Use
  Company Number: CA-SAMSUNG BIOEPIS-SB-2020-33730

PATIENT
  Age: 49 Year
  Sex: Male
  Weight: 88 kg

DRUGS (2)
  1. PREDNISONE. [Concomitant]
     Active Substance: PREDNISONE
     Indication: PRODUCT USED FOR UNKNOWN INDICATION
     Dosage: UNKNOWN
     Route: 065
  2. INFLIXIMAB [Suspect]
     Active Substance: INFLIXIMAB
     Indication: COLITIS ULCERATIVE
     Route: 042

REACTIONS (8)
  - Drug monitoring procedure not performed [Unknown]
  - Intentional product use issue [Unknown]
  - Off label use [Unknown]
  - Condition aggravated [Unknown]
  - Blood pressure systolic increased [Unknown]
  - Respiratory rate increased [Unknown]
  - Lacrimation increased [Unknown]
  - Nasal congestion [Unknown]
